FAERS Safety Report 6588769-1 (Version None)
Quarter: 2010Q1

REPORT INFORMATION
  Report Type: 
  Country: None (occurrence: None)
  Receive Date: 20100218
  Receipt Date: 20100208
  Transmission Date: 20100710
  Serious: Yes (Hospitalization)
  Sender: FDA-Public Use
  Company Number: JP-WATSON-2010-01655

PATIENT
  Age: 82 Year
  Sex: Male

DRUGS (3)
  1. FLUOROURACIL [Suspect]
     Indication: COLON CANCER
     Dosage: 400 MG/M2, DAILY
  2. LEUKOVORIN [Suspect]
     Indication: COLON CANCER
     Dosage: 100 MG/M2, DAILY
  3. OXALIPLATIN [Suspect]
     Indication: COLON CANCER
     Dosage: 85 MG/M2, DAILY

REACTIONS (1)
  - INTERSTITIAL LUNG DISEASE [None]
